FAERS Safety Report 6394872-1 (Version None)
Quarter: 2009Q4

REPORT INFORMATION
  Report Type: 
  Country: None (occurrence: None)
  Receive Date: 20091009
  Receipt Date: 20090526
  Transmission Date: 20100525
  Serious: Yes (Other)
  Sender: FDA-Public Use
  Company Number: BR-PFIZER INC-2009218053

PATIENT
  Age: 77 Year

DRUGS (11)
  1. XALACOM [Suspect]
     Indication: GLAUCOMA
     Dosage: UNK
     Route: 047
  2. XALATAN [Suspect]
     Indication: GLAUCOMA
     Dosage: UNK
     Route: 047
  3. GANFORT [Suspect]
     Dosage: UNK
  4. ALPHAGAN [Suspect]
     Dosage: UNK
  5. GLUCOFORMIN [Concomitant]
     Indication: DIABETES MELLITUS
     Dosage: UNK
  6. CALCIUM CARBONATE/COLECALCIFEROL [Concomitant]
     Indication: OSTEOPOROSIS
  7. LEXAPRO [Concomitant]
     Indication: DEPRESSION
     Dosage: 10 MG, UNK
  8. OMEPRAZOLE [Concomitant]
     Indication: GASTRIC DISORDER
     Dosage: 20 MG, UNK
  9. PURAN T4 [Concomitant]
     Indication: THYROID DISORDER
  10. CENTRUM [Concomitant]
  11. VITAMIN B COMPLEX CAP [Concomitant]

REACTIONS (5)
  - BLOOD TRIGLYCERIDES ABNORMAL [None]
  - CARDIAC OPERATION [None]
  - EYE IRRITATION [None]
  - GLAUCOMA [None]
  - OCULAR HYPERAEMIA [None]
